FAERS Safety Report 8002803-3 (Version None)
Quarter: 2011Q4

REPORT INFORMATION
  Report Type: 
  Country: None (occurrence: None)
  Receive Date: 20111222
  Receipt Date: 20101108
  Transmission Date: 20120403
  Serious: No
  Sender: FDA-Public Use
  Company Number: US-GLAXOSMITHKLINE-A0808672A

PATIENT
  Age: 74 Year
  Sex: Male

DRUGS (12)
  1. PROSTATE MEDICATION [Concomitant]
  2. SIMVASTATIN [Concomitant]
  3. ASPIRIN [Concomitant]
  4. AVODART [Suspect]
     Indication: BENIGN PROSTATIC HYPERPLASIA
     Dosage: .5MG PER DAY
     Route: 048
     Dates: start: 20090710
  5. METFORMIN HCL [Concomitant]
  6. PROSTATE FORMULA [Concomitant]
  7. METHOTREXATE [Concomitant]
  8. AMARYL [Concomitant]
  9. DIOVAN [Concomitant]
  10. GEMFIBROZIL [Concomitant]
  11. FOLIC ACID [Concomitant]
  12. COQ10 [Concomitant]

REACTIONS (7)
  - SEMEN VOLUME DECREASED [None]
  - PROSTATIC SPECIFIC ANTIGEN DECREASED [None]
  - PROSTATIC SPECIFIC ANTIGEN INCREASED [None]
  - DRUG INEFFECTIVE [None]
  - RECTAL SPASM [None]
  - BLOOD GLUCOSE INCREASED [None]
  - RETROGRADE EJACULATION [None]
